FAERS Safety Report 22193147 (Version 2)
Quarter: 2023Q2

REPORT INFORMATION
  Report Type: Report from Study
  Country: CA (occurrence: CA)
  Receive Date: 20230410
  Receipt Date: 20230421
  Transmission Date: 20230722
  Serious: Yes (Death, Other)
  Sender: FDA-Public Use
  Company Number: CA-002147023-NVSC2023CA081275

PATIENT
  Age: 57 Year
  Sex: Male
  Weight: 51 kg

DRUGS (2)
  1. LAMPRENE [Suspect]
     Active Substance: CLOFAZIMINE
     Indication: Atypical mycobacterial infection
     Dosage: 100 MG
     Route: 048
     Dates: start: 20220201
  2. LAMPRENE [Suspect]
     Active Substance: CLOFAZIMINE
     Dosage: 100 MG, LAST DOSE
     Route: 048
     Dates: start: 20230323

REACTIONS (4)
  - Pneumonia [Fatal]
  - Respiratory failure [Unknown]
  - Sepsis [Unknown]
  - Multiple organ dysfunction syndrome [Unknown]

NARRATIVE: CASE EVENT DATE: 20230324
